FAERS Safety Report 18343063 (Version 1)
Quarter: 2020Q4

REPORT INFORMATION
  Report Type: Spontaneous
  Country: TR (occurrence: TR)
  Receive Date: 20201005
  Receipt Date: 20201005
  Transmission Date: 20210113
  Serious: Yes (Hospitalization)
  Sender: FDA-Public Use
  Company Number: TR-SA-2020SA267251

PATIENT

DRUGS (1)
  1. CEREZYME [Suspect]
     Active Substance: IMIGLUCERASE
     Dosage: UNK UNK, QM
     Route: 065

REACTIONS (4)
  - Loss of consciousness [Unknown]
  - Off label use [Unknown]
  - Neurological examination abnormal [Unknown]
  - Drug ineffective [Unknown]
